FAERS Safety Report 7102990-5 (Version None)
Quarter: 2010Q4

REPORT INFORMATION
  Report Type: 
  Country: None (occurrence: None)
  Receive Date: 20101115
  Receipt Date: 20080311
  Transmission Date: 20110411
  Serious: No
  Sender: FDA-Public Use
  Company Number: US-KINGPHARMUSA00001-K200800306

PATIENT
  Sex: Male

DRUGS (1)
  1. INTAL [Suspect]
     Indication: HYPERSENSITIVITY
     Dosage: 2 PUFFS FOUR TIMES A DAY
     Dates: start: 20080206

REACTIONS (2)
  - DRUG ADMINISTRATION ERROR [None]
  - DRUG INEFFECTIVE [None]
